FAERS Safety Report 8433310-1 (Version None)
Quarter: 2012Q2

REPORT INFORMATION
  Report Type: 
  Country: None (occurrence: None)
  Receive Date: 20120613
  Receipt Date: 20120530
  Transmission Date: 20120825
  Serious: Yes (Death, Life-Threatening, Hospitalization, Disabling, Other)
  Sender: FDA-Public Use
  Company Number: US-MYLANLABS-2009AC000212

PATIENT
  Sex: Male
  Weight: 92.99 kg

DRUGS (42)
  1. ATENOLOL [Concomitant]
     Route: 048
  2. ASPIRIN [Concomitant]
  3. NITROGLYCERIN [Concomitant]
     Dosage: Q 5 MIN X 3 PRN FOR CHEST PAIN
     Route: 060
  4. CARDIZEM CD [Concomitant]
  5. GLUCOVANCE [Concomitant]
     Dosage: X7 DAYS
  6. HYDROCORTISONE [Concomitant]
     Dosage: X2 WEEKS
     Route: 061
  7. AMOXIL [Concomitant]
  8. TRICOR [Concomitant]
     Route: 048
  9. ENALAPRIL MALEATE [Concomitant]
  10. ZESTRIL [Concomitant]
  11. LEVAQUIN [Concomitant]
     Dosage: X7 DAYS
  12. LASIX [Concomitant]
  13. MYCELEX [Concomitant]
     Dosage: 5 X PER DAY FOR 2 WEEKS
  14. NITROGLYCERIN [Concomitant]
     Dosage: 1 INCH
  15. AMARYL [Concomitant]
  16. LOVENOX [Concomitant]
     Route: 058
  17. GLUCOTROL [Concomitant]
  18. COREG [Concomitant]
     Route: 048
  19. NORVASC [Concomitant]
  20. ISOSORBIDE DINITRATE [Concomitant]
  21. FLOXIN /00239102/ [Concomitant]
  22. BENADRYL [Concomitant]
     Dosage: X7 DAYS
     Route: 048
  23. LEVEMIR [Concomitant]
     Route: 058
  24. AMICARDIA [Concomitant]
  25. SPIRONOLACTONE [Concomitant]
  26. POTASSIUM [Concomitant]
  27. MEDROL [Concomitant]
     Dosage: DOSEPAK
  28. NITRO-BID [Concomitant]
     Route: 048
  29. NIZORAL [Concomitant]
     Indication: RASH
     Route: 061
  30. SUMYCIN [Concomitant]
  31. ZETIA [Concomitant]
     Route: 048
  32. ZITHROMAX [Concomitant]
  33. DIGOXIN [Suspect]
     Route: 048
     Dates: start: 19960925, end: 20070211
  34. HUMULIN R [Concomitant]
     Dosage: 70/30 44 UNITS IN AM AND 24 UNITS IN EVENING
  35. VASOTEC [Concomitant]
  36. FUROSEMIDE [Concomitant]
  37. LIPITOR [Concomitant]
  38. COUMADIN [Concomitant]
  39. PLAVIX [Concomitant]
  40. GLIPIZIDE [Concomitant]
  41. ALLOPURINOL [Concomitant]
     Route: 048
  42. AVELOX [Concomitant]
     Dosage: X 7 DAYS

REACTIONS (108)
  - CARDIOGENIC SHOCK [None]
  - ENDOTRACHEAL INTUBATION [None]
  - BUNDLE BRANCH BLOCK RIGHT [None]
  - BUNDLE BRANCH BLOCK LEFT [None]
  - PROSTATITIS [None]
  - CATARACT OPERATION [None]
  - HYPERHIDROSIS [None]
  - HYPERCHOLESTEROLAEMIA [None]
  - LACERATION [None]
  - PERIVASCULAR DERMATITIS [None]
  - PRESYNCOPE [None]
  - ORAL MUCOSAL ERYTHEMA [None]
  - ARTHRALGIA [None]
  - EMOTIONAL DISTRESS [None]
  - MYOCARDIAL ISCHAEMIA [None]
  - ANGIOGRAM [None]
  - HAEMOGLOBIN DECREASED [None]
  - CHRONIC OBSTRUCTIVE PULMONARY DISEASE [None]
  - CATARACT DIABETIC [None]
  - CEREBRAL ATROPHY [None]
  - CHEST X-RAY ABNORMAL [None]
  - RASH MACULO-PAPULAR [None]
  - PRODUCTIVE COUGH [None]
  - ECONOMIC PROBLEM [None]
  - PAIN [None]
  - HYPERTENSION [None]
  - CARDIAC DISORDER [None]
  - TRANSFUSION [None]
  - CORONARY ARTERIAL STENT INSERTION [None]
  - DYSPNOEA [None]
  - PROSTATOMEGALY [None]
  - HYPERKALAEMIA [None]
  - HYPORESPONSIVE TO STIMULI [None]
  - HYPOTENSION [None]
  - DIZZINESS [None]
  - PNEUMONIA [None]
  - PULMONARY FUNCTION TEST ABNORMAL [None]
  - RENAL MASS [None]
  - CAROTID ENDARTERECTOMY [None]
  - ANAEMIA [None]
  - CARDIAC PACEMAKER INSERTION [None]
  - DEHYDRATION [None]
  - ELECTROCARDIOGRAM ABNORMAL [None]
  - LABORATORY TEST ABNORMAL [None]
  - HYPOAESTHESIA [None]
  - OSTEOPENIA [None]
  - BODY TINEA [None]
  - ACTIVITIES OF DAILY LIVING IMPAIRED [None]
  - PHYSICAL DISABILITY [None]
  - DEATH [None]
  - ARRHYTHMIA [None]
  - HAEMOPTYSIS [None]
  - ISCHAEMIC CARDIOMYOPATHY [None]
  - BENIGN PROSTATIC HYPERPLASIA [None]
  - COMPUTERISED TOMOGRAM ABNORMAL [None]
  - ROAD TRAFFIC ACCIDENT [None]
  - NAUSEA [None]
  - PALPITATIONS [None]
  - PHARYNGITIS [None]
  - VISION BLURRED [None]
  - HEMIPARESIS [None]
  - CUTANEOUS LUPUS ERYTHEMATOSUS [None]
  - CAROTID ARTERY STENOSIS [None]
  - DERMATITIS ALLERGIC [None]
  - CHEST DISCOMFORT [None]
  - DIABETIC NEPHROPATHY [None]
  - ERECTILE DYSFUNCTION [None]
  - RASH ERYTHEMATOUS [None]
  - PYREXIA [None]
  - GENERAL PHYSICAL HEALTH DETERIORATION [None]
  - GOUT [None]
  - HAEMATURIA [None]
  - HAEMORRHOIDS [None]
  - PAIN IN JAW [None]
  - ORAL CANDIDIASIS [None]
  - PNEUMOCOCCAL INFECTION [None]
  - PULSE PRESSURE DECREASED [None]
  - RASH PRURITIC [None]
  - RHONCHI [None]
  - ILL-DEFINED DISORDER [None]
  - JAW FRACTURE [None]
  - CHEST PAIN [None]
  - AORTIC ANEURYSM [None]
  - CARDIAC FAILURE CONGESTIVE [None]
  - LOSS OF CONSCIOUSNESS [None]
  - CARDIOMEGALY [None]
  - DIVERTICULUM [None]
  - PROTEINURIA [None]
  - RALES [None]
  - ANGINA UNSTABLE [None]
  - ASTHENIA [None]
  - PHOTOSENSITIVITY REACTION [None]
  - ACUTE RESPIRATORY FAILURE [None]
  - DIABETES MELLITUS INADEQUATE CONTROL [None]
  - LEFT VENTRICULAR HYPERTROPHY [None]
  - METABOLIC ACIDOSIS [None]
  - BRONCHITIS [None]
  - SKIN CANDIDA [None]
  - CATHETERISATION CARDIAC ABNORMAL [None]
  - COUGH [None]
  - MYALGIA [None]
  - HAEMATOCRIT [None]
  - HYPOGLYCAEMIA [None]
  - VENTRICULAR EXTRASYSTOLES [None]
  - TEMPOROMANDIBULAR JOINT SYNDROME [None]
  - TOBACCO USER [None]
  - VIRAL INFECTION [None]
  - WHEEZING [None]
